FAERS Safety Report 6572259-6 (Version None)
Quarter: 2010Q1

REPORT INFORMATION
  Report Type: 
  Country: None (occurrence: None)
  Receive Date: 20100201
  Receipt Date: 20100128
  Transmission Date: 20100710
  Serious: Yes (Other)
  Sender: FDA-Public Use
  Company Number: 1000011178

PATIENT
  Age: 72 Year
  Sex: Female

DRUGS (6)
  1. THYROID TAB [Suspect]
     Indication: HYPOTHYROIDISM
     Dosage: 120 MG (60 MG, 2 IN 1 D), ORAL; (30 MG, AS REQUIRED)
     Route: 048
     Dates: start: 19850101
  2. THYROID TAB [Suspect]
     Indication: HYPOTHYROIDISM
     Dosage: 120 MG (60 MG, 2 IN 1 D), ORAL; (30 MG, AS REQUIRED)
     Route: 048
     Dates: start: 20100101
  3. MULTI-VITAMINS [Concomitant]
  4. LISINOPRIL [Concomitant]
  5. XANAX [Concomitant]
  6. ASPIRIN [Concomitant]

REACTIONS (5)
  - BODY TEMPERATURE DECREASED [None]
  - BRAIN STEM HAEMORRHAGE [None]
  - CHEST PAIN [None]
  - FEELING COLD [None]
  - INSOMNIA [None]
